FAERS Safety Report 25799045 (Version 1)
Quarter: 2025Q3

REPORT INFORMATION
  Report Type: Spontaneous
  Country: US (occurrence: US)
  Receive Date: 20250913
  Receipt Date: 20250913
  Transmission Date: 20251021
  Serious: No
  Sender: TOLMAR
  Company Number: US-Tolmar-TLM-2025-05829

PATIENT

DRUGS (2)
  1. FENSOLVI [Suspect]
     Active Substance: LEUPROLIDE ACETATE
     Indication: Precocious puberty
  2. DEVICE [Suspect]
     Active Substance: DEVICE
     Indication: Precocious puberty

REACTIONS (3)
  - Intercepted product preparation error [Unknown]
  - Wrong technique in product usage process [Unknown]
  - Device leakage [Unknown]
